FAERS Safety Report 6791280-6 (Version None)
Quarter: 2010Q2

REPORT INFORMATION
  Report Type: 
  Country: None (occurrence: None)
  Receive Date: 20100624
  Receipt Date: 20100624
  Transmission Date: 20101027
  Serious: Yes (Life-Threatening, Hospitalization)
  Sender: FDA-Public Use
  Company Number: None

PATIENT
  Age: 4 Year
  Sex: Male

DRUGS (1)
  1. CHILDREN'S MOTRIN [Suspect]

REACTIONS (5)
  - FACE OEDEMA [None]
  - HYPOPHAGIA [None]
  - LIP OEDEMA [None]
  - MALAISE [None]
  - URTICARIA [None]
